FAERS Safety Report 19421351 (Version 8)
Quarter: 2021Q4

REPORT INFORMATION
  Report Type: Report from Study
  Country: US (occurrence: US)
  Receive Date: 20210615
  Receipt Date: 20211228
  Transmission Date: 20220303
  Serious: No
  Sender: FDA-Public Use
  Company Number: NVSC2021US131736

PATIENT
  Sex: Female

DRUGS (4)
  1. ENTRESTO [Suspect]
     Active Substance: SACUBITRIL\VALSARTAN
     Indication: Product used for unknown indication
     Dosage: 50 MG,(24/26MG)
     Route: 065
  2. ENTRESTO [Suspect]
     Active Substance: SACUBITRIL\VALSARTAN
     Dosage: 100 MG,(49/51MG)
     Route: 065
  3. METOPROLOL [Concomitant]
     Active Substance: METOPROLOL
     Indication: Product used for unknown indication
     Dosage: 75 MG
     Route: 065
  4. ASPIRIN [Concomitant]
     Active Substance: ASPIRIN
     Indication: Product used for unknown indication
     Dosage: 81 MG
     Route: 065

REACTIONS (8)
  - Insomnia [Recovering/Resolving]
  - Complication associated with device [Recovered/Resolved]
  - Blood cholesterol increased [Unknown]
  - Fall [Unknown]
  - Hypotension [Not Recovered/Not Resolved]
  - Dyspnoea [Recovering/Resolving]
  - Dizziness [Unknown]
  - Blood pressure decreased [Recovering/Resolving]
